FAERS Safety Report 10034964 (Version 1)
Quarter: 2014Q1

REPORT INFORMATION
  Report Type: Spontaneous
  Country: US (occurrence: None)
  Receive Date: 20140306
  Receipt Date: 20140306
  Transmission Date: 20141002
  Serious: Yes (Other)
  Sender: FDA-Public Use
  Company Number: 163-21880-13124385

PATIENT
  Age: 71 Year
  Sex: Female
  Weight: 65.3 kg

DRUGS (9)
  1. REVLIMID (LENALIDOMIDE) (5 MILLIGRAM, CAPSULES) [Suspect]
     Indication: PLASMA CELL MYELOMA
     Route: 048
     Dates: start: 201206, end: 2013
  2. PENICILLIN V POTASSIUM [Concomitant]
  3. LISINOPRIL [Concomitant]
  4. PANTOPRAZOLE SODIUM [Concomitant]
  5. PREMARIN (ESTROGENS CONJUGATED) [Concomitant]
  6. PREDNISOLONE ACETATE [Concomitant]
  7. COMBIGAN [Concomitant]
  8. FENOFIBRATE [Concomitant]
  9. LEVOTHYROXINE SODIUM [Concomitant]

REACTIONS (1)
  - Tooth disorder [None]
